FAERS Safety Report 11074176 (Version 1)
Quarter: 2015Q2

REPORT INFORMATION
  Report Type: Spontaneous
  Country: US (occurrence: None)
  Receive Date: 20150428
  Receipt Date: 20150428
  Transmission Date: 20150821
  Serious: No
  Sender: FDA-Public Use
  Company Number: None

PATIENT
  Age: 69 Year
  Sex: Female
  Weight: 89.36 kg

DRUGS (17)
  1. POTASSIUM [Concomitant]
     Active Substance: POTASSIUM
  2. ON A DAY VITAMIN [Concomitant]
  3. CLONIDINE. [Concomitant]
     Active Substance: CLONIDINE
  4. IRON [Concomitant]
     Active Substance: IRON
  5. VITAMIN D 3 [Concomitant]
  6. GLIMEPIRIDE. [Concomitant]
     Active Substance: GLIMEPIRIDE
  7. LOVASTATIN. [Concomitant]
     Active Substance: LOVASTATIN
  8. ZOLPIDEM [Concomitant]
     Active Substance: ZOLPIDEM\ZOLPIDEM TARTRATE
  9. QRIAVIL [Concomitant]
  10. FISH OIL [Concomitant]
     Active Substance: FISH OIL
  11. OCUVITE [Concomitant]
     Active Substance: VITAMINS
  12. LIDOCAINE INJECTION [Suspect]
     Active Substance: LIDOCAINE
     Indication: ARTHRALGIA
     Dates: start: 20141109, end: 20150206
  13. LEVOTHYROXINE [Concomitant]
     Active Substance: LEVOTHYROXINE
  14. GABAPENTIN. [Concomitant]
     Active Substance: GABAPENTIN
  15. LORAZEPAM. [Concomitant]
     Active Substance: LORAZEPAM
  16. EXFORGE [Concomitant]
     Active Substance: AMLODIPINE BESYLATE\VALSARTAN
  17. LOW DOSE ASPIRIN [Concomitant]
     Active Substance: ASPIRIN

REACTIONS (14)
  - Pruritus [None]
  - Bone pain [None]
  - Oropharyngeal pain [None]
  - Ulcer [None]
  - Pain [None]
  - Injection site vesicles [None]
  - Muscle spasms [None]
  - Skin disorder [None]
  - Arthralgia [None]
  - Fungal skin infection [None]
  - Mobility decreased [None]
  - Dyspnoea [None]
  - Swollen tongue [None]
  - Urticaria [None]

NARRATIVE: CASE EVENT DATE: 20141109
